FAERS Safety Report 10049371 (Version 2)
Quarter: 2014Q2

REPORT INFORMATION
  Report Type: Report from Study
  Country: US (occurrence: US)
  Receive Date: 20140401
  Receipt Date: 20140509
  Transmission Date: 20141212
  Serious: Yes (Hospitalization, Other)
  Sender: FDA-Public Use
  Company Number: US-BRISTOL-MYERS SQUIBB COMPANY-20552303

PATIENT
  Age: 68 Year
  Sex: Male
  Weight: 62.58 kg

DRUGS (1)
  1. ERBITUX [Suspect]
     Indication: NEOPLASM MALIGNANT

REACTIONS (4)
  - Palpitations [Recovering/Resolving]
  - Pruritus [Unknown]
  - Diarrhoea [Unknown]
  - Overdose [Unknown]
